FAERS Safety Report 6266370-7 (Version None)
Quarter: 2009Q3

REPORT INFORMATION
  Report Type: 
  Country: None (occurrence: None)
  Receive Date: 20090713
  Receipt Date: 20090702
  Transmission Date: 20100115
  Serious: Yes (Life-Threatening, Hospitalization)
  Sender: FDA-Public Use
  Company Number: US-GENENTECH-230929

PATIENT
  Sex: Male

DRUGS (4)
  1. BEVACIZUMAB [Suspect]
     Indication: PROSTATE CANCER
     Dosage: 15 MG/KG, Q3W
     Route: 042
     Dates: start: 20060818
  2. TAXOTERE [Suspect]
     Indication: PROSTATE CANCER
     Dosage: 75 MG/M2, Q3W
     Route: 042
     Dates: start: 20060818
  3. PREDNISONE [Suspect]
     Indication: PROSTATE CANCER
     Dosage: 5 MG, BID
     Route: 048
     Dates: start: 20060818
  4. DEXAMETHASONE [Suspect]
     Indication: PROSTATE CANCER
     Dosage: 8 MG, Q3W
     Route: 048
     Dates: start: 20060818

REACTIONS (5)
  - BLOOD CULTURE POSITIVE [None]
  - NEUTROPENIC INFECTION [None]
  - NEUTROPHIL COUNT ABNORMAL [None]
  - PNEUMONIA [None]
  - PSEUDOMONAS INFECTION [None]
